FAERS Safety Report 9005578 (Version 2)
Quarter: 2013Q1

REPORT INFORMATION
  Report Type: Spontaneous
  Country: IT (occurrence: IT)
  Receive Date: 20130109
  Receipt Date: 20130208
  Transmission Date: 20140127
  Serious: Yes (Hospitalization, Other)
  Sender: FDA-Public Use
  Company Number: IT-PFIZER INC-2013006111

PATIENT
  Age: 84 Year
  Sex: Male

DRUGS (7)
  1. CUMADIN [Suspect]
     Indication: ATRIAL FIBRILLATION
     Dosage: 1 DOSAGE UNIT, AS NEEDED
     Route: 048
     Dates: start: 20110501, end: 20121119
  2. SEROQUEL [Suspect]
     Indication: DEPRESSION
     Dosage: 1 DOSAGE UNIT, DAILY
     Route: 048
     Dates: start: 20110301, end: 20121119
  3. ZOLOFT [Concomitant]
     Indication: DEPRESSION
     Dosage: 150 MG, 1X/DAY
     Route: 048
     Dates: start: 20110301, end: 20121119
  4. LASIX [Concomitant]
     Dosage: 1 DOSAGE UNIT
     Route: 048
  5. LOVASTATINE [Concomitant]
     Dosage: 1 DOSAGE UNIT
     Route: 048
  6. MINITRAN [Concomitant]
     Dosage: 10 MG/24H, 1 DOSAGE UNIT
  7. CONGESCOR [Concomitant]
     Dosage: 1 DOSAGE UNIT
     Route: 048

REACTIONS (4)
  - International normalised ratio increased [Unknown]
  - Subcutaneous haematoma [Unknown]
  - Balance disorder [Unknown]
  - Fall [Unknown]
